FAERS Safety Report 4682233-2 (Version None)
Quarter: 2005Q2

REPORT INFORMATION
  Report Type: 
  Country: None (occurrence: None)
  Receive Date: 20050603
  Receipt Date: 20050603
  Transmission Date: 20051028
  Serious: Yes (Other)
  Sender: FDA-Public Use
  Company Number: None

PATIENT
  Age: 46 Year
  Sex: Male
  Weight: 130.1823 kg

DRUGS (1)
  1. CARISOPRODOL [Suspect]
     Indication: BACK PAIN
     Dosage: 350MG     TID    ORAL
     Route: 048
     Dates: start: 20050509, end: 20050516

REACTIONS (2)
  - ANXIETY [None]
  - PANIC ATTACK [None]
